FAERS Safety Report 5762104-0 (Version None)
Quarter: 2008Q2

REPORT INFORMATION
  Report Type: 
  Country: None (occurrence: None)
  Receive Date: 20080604
  Receipt Date: 20080521
  Transmission Date: 20081010
  Serious: Yes (Other)
  Sender: FDA-Public Use
  Company Number: S08-FRA-01957-01

PATIENT
  Age: 38 Year
  Sex: Female

DRUGS (3)
  1. ESCITALOPRAM [Suspect]
     Indication: DEPRESSION
     Dosage: 10 MG QD;PO
     Route: 048
     Dates: start: 20071010, end: 20071018
  2. ZOLPIDEM [Suspect]
     Indication: INSOMNIA
     Dosage: 10 MG QD;PO
     Route: 048
     Dates: start: 20071001, end: 20071018
  3. MOTILIUM [Concomitant]

REACTIONS (1)
  - NEUTROPENIA [None]
